FAERS Safety Report 16866444 (Version 2)
Quarter: 2019Q4

REPORT INFORMATION
  Report Type: Spontaneous
  Country: BR (occurrence: BR)
  Receive Date: 20190930
  Receipt Date: 20191018
  Transmission Date: 20200122
  Serious: Yes (Hospitalization)
  Sender: FDA-Public Use
  Company Number: BR-GLAXOSMITHKLINE-BR2019AMR175150

PATIENT
  Age: 8 Year
  Sex: Male

DRUGS (3)
  1. AEROLIN [Concomitant]
     Active Substance: ALBUTEROL
     Indication: PRODUCT USED FOR UNKNOWN INDICATION
     Dosage: 5 ML, QOD(EVERY 6 HOURS (8 DROPS FOR 5 DAYS) - 5ML)
  2. PREDNISOLONE. [Concomitant]
     Active Substance: PREDNISOLONE
     Indication: PRODUCT USED FOR UNKNOWN INDICATION
     Dosage: UNK UNK, QD
  3. ZINNAT [Suspect]
     Active Substance: CEFUROXIME
     Indication: PNEUMONIA
     Dosage: 9.5 ML, BID

REACTIONS (4)
  - Overdose [Unknown]
  - Infection [Unknown]
  - Drug ineffective [Unknown]
  - Product complaint [Unknown]
